FAERS Safety Report 5191254-5 (Version None)
Quarter: 2006Q4

REPORT INFORMATION
  Report Type: 
  Country: None (occurrence: None)
  Receive Date: 20061220
  Receipt Date: 20061220
  Transmission Date: 20070319
  Serious: Yes (Hospitalization)
  Sender: FDA-Public Use
  Company Number: None

PATIENT
  Age: 95 Year
  Sex: Female
  Weight: 57.9 kg

DRUGS (11)
  1. WARFARIN SODIUM [Suspect]
     Indication: ATRIAL FIBRILLATION
     Dosage: ? MG PO DAILY CHRONIC
     Route: 048
  2. FOLVITE [Concomitant]
  3. VIT B12 [Concomitant]
  4. COLACE [Concomitant]
  5. LEXAPRO [Concomitant]
  6. LISINOPRIL [Concomitant]
  7. TOPROL-XL [Concomitant]
  8. MIRALAX [Concomitant]
  9. QUININE SULFATE [Concomitant]
  10. MIACALCIN [Concomitant]
  11. OSCAL [Concomitant]

REACTIONS (3)
  - ANAEMIA [None]
  - ECCHYMOSIS [None]
  - HAEMATOMA [None]
